FAERS Safety Report 9068958 (Version 2)
Quarter: 2013Q1

REPORT INFORMATION
  Report Type: Spontaneous
  Country: BR (occurrence: BR)
  Receive Date: 20130128
  Receipt Date: 20130226
  Transmission Date: 20140127
  Serious: Yes (Other)
  Sender: FDA-Public Use
  Company Number: PHHY2012BR120978

PATIENT
  Sex: Female

DRUGS (4)
  1. RITALINA [Suspect]
     Indication: ATTENTION DEFICIT/HYPERACTIVITY DISORDER
     Dosage: 1 DF, TID
     Route: 048
     Dates: end: 201203
  2. RITALINA [Suspect]
     Dosage: 3 DF, DAILY
     Route: 048
     Dates: start: 20121216
  3. FLUOXETIN [Concomitant]
     Indication: DEPRESSION
     Dosage: 2 DF, DAILY (BEFORE PREGNANCY)
     Route: 048
  4. FLUOXETIN [Concomitant]
     Dosage: 2 DF, DAILY (AFTER PREGNANCY)
     Route: 048

REACTIONS (2)
  - Gestational diabetes [Recovered/Resolved]
  - Maternal exposure during pregnancy [Unknown]
